FAERS Safety Report 16804092 (Version 1)
Quarter: 2019Q3

REPORT INFORMATION
  Report Type: Report from Study
  Country: US (occurrence: US)
  Receive Date: 20190913
  Receipt Date: 20190913
  Transmission Date: 20191005
  Serious: Yes (Hospitalization)
  Sender: FDA-Public Use
  Company Number: US-MYLANLABS-2019M1030443

PATIENT
  Age: 28 Year
  Sex: Male
  Weight: 82.4 kg

DRUGS (20)
  1. GLUCAGEN                           /00157801/ [Concomitant]
     Indication: BLOOD GLUCOSE ABNORMAL
     Dosage: 1 MILLIGRAM, PRN
     Route: 030
     Dates: start: 20190325
  2. MEROPENEM. [Concomitant]
     Active Substance: MEROPENEM
     Indication: INFECTIVE PULMONARY EXACERBATION OF CYSTIC FIBROSIS
     Dosage: 2000 MILLIGRAM, 98 HRS
     Route: 042
     Dates: start: 20190325
  3. PULMOZYME [Concomitant]
     Active Substance: DORNASE ALFA
     Indication: CYSTIC LUNG DISEASE
     Dosage: 1 MILLIGRAM, QD, NUB
     Dates: start: 19970108
  4. LOVENOX [Concomitant]
     Active Substance: ENOXAPARIN SODIUM
     Indication: ANTICOAGULANT THERAPY
     Dosage: 40 MILLIGRAM, QD
     Route: 058
     Dates: start: 20190325
  5. ALLEGRA [Concomitant]
     Active Substance: FEXOFENADINE HYDROCHLORIDE
     Indication: SEASONAL ALLERGY
     Dosage: 180 MILLIGRAM, QD
     Route: 048
     Dates: start: 20140217, end: 20190325
  6. PRILOSEC [Concomitant]
     Active Substance: OMEPRAZOLE MAGNESIUM
     Indication: GASTROOESOPHAGEAL REFLUX DISEASE
     Dosage: 40 MILLIGRAM, QD
     Route: 048
     Dates: start: 20011109
  7. ALLEGRA [Concomitant]
     Active Substance: FEXOFENADINE HYDROCHLORIDE
     Dosage: UNK, BID
     Route: 048
  8. DOXYCYCLINE. [Concomitant]
     Active Substance: DOXYCYCLINE
     Indication: CHEST DISCOMFORT
  9. CEFDINIR. [Concomitant]
     Active Substance: CEFDINIR
     Indication: COUGH
     Dosage: 300 MILLIGRAM, BID
     Route: 048
     Dates: start: 20190319
  10. AZITHROMYCIN ANHYDROUS. [Concomitant]
     Active Substance: AZITHROMYCIN ANHYDROUS
     Indication: CYSTIC LUNG DISEASE
     Dosage: 250 MILLIGRAM, QD, MON, WED, FRI
     Route: 048
     Dates: start: 20030828
  11. ALBUTEROL                          /00139501/ [Concomitant]
     Active Substance: ALBUTEROL
     Indication: DYSPNOEA
     Dosage: 2 PUFFS PRN
     Dates: start: 19910425
  12. XARELTO [Concomitant]
     Active Substance: RIVAROXABAN
     Indication: INFECTIVE PULMONARY EXACERBATION OF CYSTIC FIBROSIS
     Dosage: 10 MILLIGRAM, QD
     Route: 048
     Dates: start: 20181231, end: 20190110
  13. TYLENOL [Concomitant]
     Active Substance: ACETAMINOPHEN
     Indication: PYREXIA
     Dosage: 650 MILLIGRAM, PRN, 94 HOURS
     Route: 048
     Dates: start: 20190325
  14. COLYMYCIN                          /00013206/ [Concomitant]
     Indication: INFECTIVE PULMONARY EXACERBATION OF CYSTIC FIBROSIS
     Dosage: 75 MILLIGRAM, 98 HOUS
     Route: 042
     Dates: start: 20190325
  15. AQUADEKS                           /07679501/ [Concomitant]
     Active Substance: MINERALS\VITAMINS
     Indication: PANCREATIC FAILURE
     Dosage: 2 DOSAGE FORM, QD
     Route: 048
     Dates: start: 20010531
  16. DOXYCYCLINE. [Concomitant]
     Active Substance: DOXYCYCLINE
     Indication: SPUTUM INCREASED
     Dosage: 100 MILLIGRAM, BID
     Route: 048
     Dates: start: 20190121, end: 20190123
  17. TOBI PODHALER [Suspect]
     Active Substance: TOBRAMYCIN
     Indication: CYSTIC FIBROSIS
     Dosage: 112 MILLIGRAM EVERY OTHER MONTH
     Dates: start: 20190307
  18. CREON [Concomitant]
     Active Substance: PANCRELIPASE AMYLASE\PANCRELIPASE LIPASE\PANCRELIPASE PROTEASE
     Indication: PANCREATIC FAILURE
     Dosage: 7 DOSAGE FORM, QD
     Route: 048
     Dates: start: 20091124
  19. TYLENOL [Concomitant]
     Active Substance: ACETAMINOPHEN
     Indication: PAIN
  20. DEXTROSE. [Concomitant]
     Active Substance: DEXTROSE
     Indication: BLOOD GLUCOSE ABNORMAL
     Dosage: 50 MILLILITER, PRN
     Route: 042
     Dates: start: 20190325

REACTIONS (1)
  - Infective pulmonary exacerbation of cystic fibrosis [Recovered/Resolved]

NARRATIVE: CASE EVENT DATE: 20190325
